FAERS Safety Report 4262940-6 (Version None)
Quarter: 2004Q1

REPORT INFORMATION
  Report Type: 
  Country: None (occurrence: None)
  Receive Date: 20040102
  Receipt Date: 20040102
  Transmission Date: 20041129
  Serious: Yes (Hospitalization, Disabling, Other)
  Sender: FDA-Public Use
  Company Number: None

PATIENT
  Sex: Female
  Weight: 52.1637 kg

DRUGS (1)
  1. OXYCONTIN [Suspect]
     Indication: BACK PAIN
     Dosage: 20 MG -14- 3X''S DAI ORAL
     Route: 048
     Dates: start: 20010110, end: 20011103

REACTIONS (3)
  - DEPENDENCE [None]
  - FEELING ABNORMAL [None]
  - LOSS OF EMPLOYMENT [None]
